FAERS Safety Report 7018871-1 (Version None)
Quarter: 2010Q3

REPORT INFORMATION
  Report Type: 
  Country: None (occurrence: None)
  Receive Date: 20100928
  Receipt Date: 20100927
  Transmission Date: 20110219
  Serious: Yes (Death, Hospitalization)
  Sender: FDA-Public Use
  Company Number: SE-PFIZER INC-2009226259

PATIENT
  Age: 85 Year
  Sex: Male
  Weight: 76 kg

DRUGS (15)
  1. ALFADIL [Suspect]
     Dosage: 4 MG, 1X/DAY
     Route: 048
     Dates: start: 20070326, end: 20090505
  2. VELCADE [Suspect]
     Indication: MULTIPLE MYELOMA
     Dosage: 2.4 MG, UNK
     Route: 042
     Dates: start: 20090420
  3. PRAMACE [Suspect]
     Dosage: 1.25 MG, 1X/DAY
     Route: 048
     Dates: start: 20090409
  4. EMCONCOR [Suspect]
     Dosage: 1.25 MG, 1X/DAY
     Route: 048
     Dates: start: 20090409, end: 20090430
  5. PREDNISOLON [Concomitant]
     Dosage: 5 MG, 1X/DAY
     Route: 048
     Dates: start: 20090227
  6. ASPIRIN [Concomitant]
     Dosage: 300 MG, 1X/DAY
     Route: 048
     Dates: start: 20090403
  7. PLAVIX [Concomitant]
     Dosage: 300 MG, 1X/DAY
     Route: 048
     Dates: start: 20090403, end: 20090403
  8. HEPARIN [Concomitant]
     Dosage: 4000 IU, 1X/DAY
     Route: 042
     Dates: start: 20090403, end: 20090403
  9. AVODART [Concomitant]
     Dosage: 0.5 MG, 1X/DAY
     Route: 048
     Dates: start: 20090401
  10. WARAN [Concomitant]
     Dosage: 2.5 MG, UNK
     Route: 048
     Dates: start: 20090409, end: 20090427
  11. FRAGMIN [Concomitant]
     Dosage: 15000 IU, 1X/DAY
     Route: 058
     Dates: start: 20090422, end: 20090522
  12. FURIX [Concomitant]
     Dosage: 40 MG, 1X/DAY
     Route: 048
     Dates: start: 20090427
  13. LUNELAX [Concomitant]
     Dosage: 2 DF, 2X/DAY
     Route: 048
     Dates: start: 20081119
  14. ALVEDON [Concomitant]
     Dosage: 500 MG, UNK
     Route: 048
     Dates: start: 20080505
  15. ZOPIKLON NM PHARMA [Concomitant]
     Dosage: 5 MG, UNK
     Route: 048
     Dates: start: 20090505

REACTIONS (2)
  - CARDIAC FAILURE [None]
  - HYPOTENSION [None]
